FAERS Safety Report 5697480-0 (Version None)
Quarter: 2008Q2

REPORT INFORMATION
  Report Type: 
  Country: None (occurrence: None)
  Receive Date: 20080407
  Receipt Date: 20080327
  Transmission Date: 20081010
  Serious: Yes (Hospitalization, Other)
  Sender: FDA-Public Use
  Company Number: PHNU2007DE03429

PATIENT
  Age: 41 Year
  Sex: Female
  Weight: 95 kg

DRUGS (1)
  1. ZOLEDRONIC ACID [Suspect]
     Indication: MULTIPLE MYELOMA
     Dosage: 4 MG, MONTHLY
     Route: 042
     Dates: start: 20020319, end: 20070122

REACTIONS (19)
  - ABSCESS DRAINAGE [None]
  - ABSCESS JAW [None]
  - ASTHENIA [None]
  - BIOPSY SITE UNSPECIFIED ABNORMAL [None]
  - BONE DISORDER [None]
  - DENTAL PROSTHESIS USER [None]
  - INFLAMMATION [None]
  - ORAL INTAKE REDUCED [None]
  - OSTEITIS [None]
  - OSTEONECROSIS [None]
  - OSTEOTOMY [None]
  - PAIN [None]
  - PLASTIC SURGERY [None]
  - SEQUESTRECTOMY [None]
  - STAPHYLOCOCCAL OSTEOMYELITIS [None]
  - SWELLING [None]
  - TOOTH EXTRACTION [None]
  - WEIGHT DECREASED [None]
  - X-RAY ABNORMAL [None]
